FAERS Safety Report 11226458 (Version 2)
Quarter: 2015Q3

REPORT INFORMATION
  Report Type: Report from Study
  Country: US (occurrence: US)
  Receive Date: 20150629
  Receipt Date: 20150716
  Transmission Date: 20151125
  Serious: Yes (Death, Hospitalization, Other)
  Sender: FDA-Public Use
  Company Number: US-ACTELION-A-US2015-119948

PATIENT
  Age: 83 Year
  Sex: Female

DRUGS (3)
  1. TRACLEER [Suspect]
     Active Substance: BOSENTAN
     Indication: PULMONARY ARTERIAL HYPERTENSION
     Dosage: UNK
     Route: 048
  2. TYVASO [Concomitant]
     Active Substance: TREPROSTINIL
  3. SILDENAFIL. [Concomitant]
     Active Substance: SILDENAFIL

REACTIONS (7)
  - Dyspnoea exertional [Unknown]
  - Metastases to lymph nodes [Unknown]
  - Decreased appetite [Unknown]
  - Death [Fatal]
  - Breast cancer [Unknown]
  - Gastrointestinal disorder [Unknown]
  - Condition aggravated [Unknown]

NARRATIVE: CASE EVENT DATE: 20150710
